FAERS Safety Report 5796648-2 (Version None)
Quarter: 2008Q3

REPORT INFORMATION
  Report Type: 
  Country: None (occurrence: None)
  Receive Date: 20080701
  Receipt Date: 20080619
  Transmission Date: 20090109
  Serious: Yes (Hospitalization)
  Sender: FDA-Public Use
  Company Number: FR-GILEAD-2008-0016984

PATIENT
  Sex: Male
  Weight: 62 kg

DRUGS (8)
  1. TRUVADA [Suspect]
     Indication: HIV INFECTION
     Route: 048
     Dates: start: 20060327, end: 20080527
  2. SUSTIVA [Concomitant]
     Indication: HIV INFECTION
     Route: 048
     Dates: start: 20010913, end: 20080527
  3. GENHEVAC [Concomitant]
     Indication: ANTIVIRAL PROPHYLAXIS
     Dates: start: 20080505, end: 20080505
  4. GENHEVAC [Concomitant]
     Dates: start: 20080114, end: 20080114
  5. GENHEVAC [Concomitant]
     Dates: start: 20071218, end: 20071218
  6. GENHEVAC [Concomitant]
     Dates: start: 20071119, end: 20071119
  7. DEROXAT [Concomitant]
     Indication: DEPRESSION
     Route: 048
     Dates: start: 20060522
  8. NORSET [Concomitant]

REACTIONS (5)
  - ABNORMAL SENSATION IN EYE [None]
  - ASTHENIA [None]
  - DIARRHOEA [None]
  - INTENTIONAL OVERDOSE [None]
  - SUICIDE ATTEMPT [None]
